FAERS Safety Report 8834000 (Version 2)
Quarter: 2012Q4

REPORT INFORMATION
  Report Type: 
  Country: US (occurrence: US)
  Receive Date: 20121010
  Receipt Date: 20121109
  Transmission Date: 20130627
  Serious: Yes (Other)
  Sender: FDA-Public Use
  Company Number: US-BAXTER-2012BAX019244

PATIENT
  Age: 55 Year
  Sex: Male

DRUGS (4)
  1. DIANEAL PD2 [Suspect]
     Indication: PERITONEAL DIALYSIS
     Route: 033
  2. DIANEAL PD2 (ULTRABAG) [Suspect]
     Indication: PERITONEAL DIALYSIS
     Route: 033
  3. COREG [Concomitant]
     Indication: HEART DISORDER
     Route: 048
  4. COREG [Concomitant]
     Route: 048

REACTIONS (2)
  - Angina pectoris [Recovered/Resolved]
  - Musculoskeletal pain [Recovered/Resolved]
